FAERS Safety Report 4520404-6 (Version None)
Quarter: 2004Q4

REPORT INFORMATION
  Report Type: 
  Country: None (occurrence: None)
  Receive Date: 20041206
  Receipt Date: 20041206
  Transmission Date: 20050328
  Serious: Yes (Life-Threatening, Hospitalization)
  Sender: FDA-Public Use
  Company Number: None

PATIENT
  Sex: Male
  Weight: 58.0604 kg

DRUGS (8)
  1. TENOFOVIR   300MG  GILEAD SCIENCES [Suspect]
     Indication: HIV INFECTION
     Dosage: 300MG  QD ORAL
     Route: 048
     Dates: start: 20020501, end: 20041101
  2. STAVUDINE [Concomitant]
  3. EFAVIRENZ [Concomitant]
  4. LOPINAVIR-RITONAVIR [Concomitant]
  5. NASAL FLUNISOLIDE [Concomitant]
  6. LOPERAMIDE HCL [Concomitant]
  7. MULTI-VITAMIN [Concomitant]
  8. TRIRETINOIN/HYDROQUINONE CREAMS [Concomitant]

REACTIONS (5)
  - ASTHENIA [None]
  - BLOOD ELECTROLYTES ABNORMAL [None]
  - FANCONI SYNDROME ACQUIRED [None]
  - RENAL TUBULAR ACIDOSIS [None]
  - RHABDOMYOLYSIS [None]
